FAERS Safety Report 21435227 (Version 3)
Quarter: 2022Q4

REPORT INFORMATION
  Report Type: Spontaneous
  Country: CA (occurrence: CA)
  Receive Date: 20221010
  Receipt Date: 20221215
  Transmission Date: 20230112
  Serious: No
  Sender: FDA-Public Use
  Company Number: CA-PFIZER INC-202200777600

PATIENT
  Age: 11 Year
  Sex: Male

DRUGS (3)
  1. ABRILADA [Suspect]
     Active Substance: ADALIMUMAB-AFZB
     Indication: Crohn^s disease
     Dosage: 160 MG WEEK 0, 80MG WEEK 2, THEN 40MG WEEK 4 AND THEN 40MG EVERY 2 WEEKS
     Route: 058
     Dates: start: 20220609
  2. IMODIUM [Concomitant]
     Active Substance: LOPERAMIDE HYDROCHLORIDE
     Dosage: UNK
  3. IRON [Concomitant]
     Active Substance: IRON
     Dosage: UNK

REACTIONS (7)
  - Nasopharyngitis [Unknown]
  - Skin laceration [Unknown]
  - Contusion [Unknown]
  - Device failure [Unknown]
  - Poor quality device used [Unknown]
  - Drug dose omission by device [Unknown]
  - Off label use [Unknown]

NARRATIVE: CASE EVENT DATE: 20220101
